FAERS Safety Report 12657873 (Version 3)
Quarter: 2016Q3

REPORT INFORMATION
  Report Type: Report from Study
  Country: US (occurrence: US)
  Receive Date: 20160816
  Receipt Date: 20160824
  Transmission Date: 20161109
  Serious: Yes (Other)
  Sender: FDA-Public Use
  Company Number: US-JNJFOC-20160808601

PATIENT
  Sex: Female

DRUGS (1)
  1. REMICADE [Suspect]
     Active Substance: INFLIXIMAB
     Indication: CROHN^S DISEASE
     Dosage: DOUBLE DOSE
     Route: 042
     Dates: end: 20160804

REACTIONS (4)
  - Off label use [Unknown]
  - Arthritis enteropathic [Unknown]
  - Drug ineffective [Unknown]
  - Product use issue [Unknown]
